FAERS Safety Report 13601852 (Version 1)
Quarter: 2017Q2

REPORT INFORMATION
  Report Type: Spontaneous
  Country: GB (occurrence: GB)
  Receive Date: 20170601
  Receipt Date: 20170601
  Transmission Date: 20170830
  Serious: Yes (Disabling, Other)
  Sender: FDA-Public Use
  Company Number: GB-ASTRAZENECA-2017SE57224

PATIENT
  Age: 35 Year
  Sex: Female
  Weight: 57.1 kg

DRUGS (5)
  1. HYDROXYCHLOROQUINE [Concomitant]
     Active Substance: HYDROXYCHLOROQUINE
  2. CLIMAVAL [Concomitant]
     Active Substance: ESTRADIOL VALERATE
  3. ZOLADEX LA [Suspect]
     Active Substance: GOSERELIN ACETATE
     Dosage: 3.6MG UNKNOWN
     Route: 058
     Dates: start: 20120518, end: 20121115
  4. ZOLADEX LA [Suspect]
     Active Substance: GOSERELIN ACETATE
     Dosage: 10.8MG UNKNOWN
     Route: 058
     Dates: start: 2012, end: 2012
  5. ARCOXIA [Concomitant]
     Active Substance: ETORICOXIB

REACTIONS (5)
  - Bone pain [Not Recovered/Not Resolved]
  - Swelling [Not Recovered/Not Resolved]
  - Arthralgia [Not Recovered/Not Resolved]
  - Inflammatory marker increased [Not Recovered/Not Resolved]
  - Incorrect dose administered [Unknown]

NARRATIVE: CASE EVENT DATE: 20120701
